FAERS Safety Report 5936216-2 (Version None)
Quarter: 2008Q4

REPORT INFORMATION
  Report Type: 
  Country: None (occurrence: None)
  Receive Date: 20081030
  Receipt Date: 20071119
  Transmission Date: 20090506
  Serious: No
  Sender: FDA-Public Use
  Company Number: A0680894A

PATIENT
  Age: 64 Year
  Sex: Female

DRUGS (13)
  1. SEREVENT [Suspect]
     Indication: ASTHMA
     Dosage: 1PUFF TWICE PER DAY
     Route: 055
     Dates: start: 20070907
  2. SINGULAIR [Concomitant]
  3. UNKNOWN MEDICATION [Concomitant]
  4. AGGRENOX [Concomitant]
  5. PROGRAFT [Concomitant]
  6. SODIUM BICARB [Concomitant]
  7. PHOSLO [Concomitant]
  8. COUMADIN [Concomitant]
  9. LOPRESSOR [Concomitant]
  10. MYFORTIC [Concomitant]
  11. VALCYTE [Concomitant]
  12. LIPITOR [Concomitant]
  13. PROTONIX [Concomitant]

REACTIONS (2)
  - DRUG INEFFECTIVE [None]
  - PRODUCT QUALITY ISSUE [None]
